FAERS Safety Report 10227401 (Version 1)
Quarter: 2014Q2

REPORT INFORMATION
  Report Type: Spontaneous
  Country: US (occurrence: None)
  Receive Date: 20140609
  Receipt Date: 20140609
  Transmission Date: 20141212
  Serious: Yes (Other)
  Sender: FDA-Public Use
  Company Number: None

PATIENT
  Age: 12 Year
  Sex: Male
  Weight: 78 kg

DRUGS (1)
  1. HALOPERIDOL [Suspect]
     Indication: BIPOLAR DISORDER
     Route: 048
     Dates: start: 20140525, end: 20140527

REACTIONS (4)
  - Dystonia [None]
  - Tic [None]
  - Pain [None]
  - Movement disorder [None]
